FAERS Safety Report 25530676 (Version 1)
Quarter: 2025Q3

REPORT INFORMATION
  Report Type: Spontaneous
  Country: GB (occurrence: GB)
  Receive Date: 20250708
  Receipt Date: 20250708
  Transmission Date: 20251021
  Serious: Yes (Hospitalization, Other)
  Sender: ELI LILLY AND COMPANY
  Company Number: None

PATIENT
  Age: 75 Year
  Sex: Male
  Weight: 94 kg

DRUGS (7)
  1. MOUNJARO [Suspect]
     Active Substance: TIRZEPATIDE
     Indication: Weight control
     Dosage: 2.5MG/0.6ML INJECTION 2.4 PRE-FILLED PEN ONCE PER WEEK X 4 WEEKS
     Route: 065
     Dates: start: 20250402, end: 20250428
  2. MOUNJARO [Suspect]
     Active Substance: TIRZEPATIDE
     Indication: Type 2 diabetes mellitus
  3. ASPIRIN [Concomitant]
     Active Substance: ASPIRIN
     Indication: Coronary artery bypass
     Route: 065
     Dates: start: 20190621
  4. BISOPROLOL [Concomitant]
     Active Substance: BISOPROLOL
     Indication: Coronary artery bypass
     Route: 065
     Dates: start: 20190621
  5. OMEPRAZOLE [Concomitant]
     Active Substance: OMEPRAZOLE
     Indication: Coronary artery bypass
     Route: 065
     Dates: end: 20190621
  6. RAMIPRIL [Concomitant]
     Active Substance: RAMIPRIL
     Indication: Product used for unknown indication
     Route: 065
     Dates: start: 20190621
  7. TAMSULOSIN [Concomitant]
     Active Substance: TAMSULOSIN
     Indication: Coronary artery bypass
     Route: 065
     Dates: start: 20190621

REACTIONS (7)
  - Dehydration [Recovered/Resolved]
  - Pancreatitis [Unknown]
  - Renal impairment [Unknown]
  - Liver injury [Unknown]
  - Hypophagia [Unknown]
  - Illness [Unknown]
  - Diarrhoea [Unknown]

NARRATIVE: CASE EVENT DATE: 20250401
